FAERS Safety Report 24105794 (Version 2)
Quarter: 2024Q3

REPORT INFORMATION
  Report Type: Spontaneous
  Country: AU (occurrence: AU)
  Receive Date: 20240717
  Receipt Date: 20240823
  Transmission Date: 20241017
  Serious: Yes (Other)
  Sender: WOODWARD PHARMA SERVICES
  Company Number: AU-WOODWARD-2024-AU-000307

PATIENT
  Sex: Male

DRUGS (24)
  1. DUTASTERIDE\TAMSULOSIN HYDROCHLORIDE [Suspect]
     Active Substance: DUTASTERIDE\TAMSULOSIN HYDROCHLORIDE
     Indication: Product used for unknown indication
     Dosage: UNK
  2. DOMPERIDONE [Suspect]
     Active Substance: DOMPERIDONE
     Dosage: UNK
  3. FLUDROCORTISONE [Suspect]
     Active Substance: FLUDROCORTISONE
     Dosage: 100 MG; UNKNOWN
  4. FUROSEMIDE [Suspect]
     Active Substance: FUROSEMIDE
     Dosage: UNK
  5. METFORMIN HYDROCHLORIDE [Suspect]
     Active Substance: METFORMIN HYDROCHLORIDE
     Dosage: 100 MG; UNKNOWN
  6. NORTRIPTYLINE HYDROCHLORIDE [Suspect]
     Active Substance: NORTRIPTYLINE HYDROCHLORIDE
     Dosage: UNK
  7. PRAMIPEXOLE DIHYDROCHLORIDE [Suspect]
     Active Substance: PRAMIPEXOLE DIHYDROCHLORIDE
     Dosage: UNK
  8. PREGABALIN [Suspect]
     Active Substance: PREGABALIN
     Dosage: UNK
  9. RABEPRAZOLE SODIUM [Suspect]
     Active Substance: RABEPRAZOLE SODIUM
     Dosage: 40 MG, QD
  10. RASAGILINE MESYLATE [Suspect]
     Active Substance: RASAGILINE MESYLATE
     Dosage: UNK
  11. RIVAROXABAN [Suspect]
     Active Substance: RIVAROXABAN
     Dosage: UNK
  12. INTRAGAM P [Suspect]
     Active Substance: HUMAN IMMUNOGLOBULIN G
     Dosage: UNK,10, INJECTION
  13. POLYETHYLENE GLYCOL 3350 [Suspect]
     Active Substance: POLYETHYLENE GLYCOL 3350
     Dosage: UNK
  14. SOLIFENACIN SUCCINATE [Suspect]
     Active Substance: SOLIFENACIN SUCCINATE
     Dosage: UNK
  15. XARELTO [Suspect]
     Active Substance: RIVAROXABAN
     Dosage: UNK
  16. METFORMIN [Suspect]
     Active Substance: METFORMIN HYDROCHLORIDE
     Dosage: UNK
  17. PRAMIPEXOLE [Suspect]
     Active Substance: PRAMIPEXOLE\PRAMIPEXOLE DIHYDROCHLORIDE
     Dosage: UNK
  18. APOMORPHINE HYDROCHLORIDE [Suspect]
     Active Substance: APOMORPHINE HYDROCHLORIDE
     Dosage: UNK
     Route: 058
  19. BISACODYL [Suspect]
     Active Substance: BISACODYL
     Dosage: 5 MG; UNK
  20. CALTRATE WITH VITAMIN D [Suspect]
     Active Substance: CALCIUM CARBONATE\CHOLECALCIFEROL
     Dosage: UNK
  21. AMANTADINE HYDROCHLORIDE [Suspect]
     Active Substance: AMANTADINE HYDROCHLORIDE
     Dosage: UNK
  22. AMITRIPTYLINE HYDROCHLORIDE [Suspect]
     Active Substance: AMITRIPTYLINE HYDROCHLORIDE
     Dosage: UNK
  23. ATORVASTATIN [Suspect]
     Active Substance: ATORVASTATIN
     Dosage: 80 MG; UNK
  24. CARBIDOPA\LEVODOPA [Suspect]
     Active Substance: CARBIDOPA\LEVODOPA
     Dosage: 1.5 DF; UNK

REACTIONS (21)
  - Speech disorder [Unknown]
  - Abdominal distension [Unknown]
  - Dysphonia [Unknown]
  - Dysarthria [Unknown]
  - Micturition urgency [Unknown]
  - Nocturia [Unknown]
  - Dizziness [Unknown]
  - Neuralgia [Unknown]
  - Cerebellar stroke [Unknown]
  - Dizziness postural [Unknown]
  - Cerebral hypoperfusion [Unknown]
  - Diplopia [Unknown]
  - Disease recurrence [Unknown]
  - Binocular eye movement disorder [Unknown]
  - Hypotension [Unknown]
  - Neuropathy peripheral [Unknown]
  - Feeling cold [Unknown]
  - Balance disorder [Unknown]
  - Condition aggravated [Unknown]
  - Constipation [Unknown]
  - Gait disturbance [Unknown]

NARRATIVE: CASE EVENT DATE: 20211225
